FAERS Safety Report 6185176-0 (Version None)
Quarter: 2009Q2

REPORT INFORMATION
  Report Type: 
  Country: None (occurrence: None)
  Receive Date: 20090511
  Receipt Date: 20081202
  Transmission Date: 20091009
  Serious: No
  Sender: FDA-Public Use
  Company Number: US-KINGPHARMUSA00001-K200801365

PATIENT
  Sex: Male

DRUGS (1)
  1. CORTISPORIN OINTMENT [Suspect]
     Indication: CONJUNCTIVITIS
     Dosage: EVERY 6 HOURS
     Route: 047
     Dates: start: 20081129, end: 20081201

REACTIONS (2)
  - INCORRECT DRUG DOSAGE FORM ADMINISTERED [None]
  - NO ADVERSE EVENT [None]
